FAERS Safety Report 7450210-4 (Version None)
Quarter: 2011Q2

REPORT INFORMATION
  Report Type: 
  Country: None (occurrence: None)
  Receive Date: 20110502
  Receipt Date: 20110427
  Transmission Date: 20111010
  Serious: No
  Sender: FDA-Public Use
  Company Number: US-PFIZER INC-2011091427

PATIENT
  Age: 62 Year
  Sex: Female

DRUGS (2)
  1. ALPHAGAN [Concomitant]
     Dosage: UNK
  2. LATANOPROST [Suspect]
     Dosage: ONE DROP EACH EYE DAILY
     Route: 047
     Dates: start: 20110405

REACTIONS (1)
  - EYE IRRITATION [None]
